FAERS Safety Report 8840717 (Version 1)
Quarter: 2012Q4

REPORT INFORMATION
  Report Type: 
  Country: US (occurrence: US)
  Receive Date: 20121015
  Receipt Date: 20121015
  Transmission Date: 20130627
  Serious: Yes (Other)
  Sender: FDA-Public Use
  Company Number: US-PFIZER INC-2012253677

PATIENT
  Age: 38 Year
  Sex: Male

DRUGS (2)
  1. LYRICA [Suspect]
     Dosage: 150 mg, 2x/day
     Route: 048
  2. FLUOXETINE [Suspect]
     Dosage: 60 mg, 1x/day (40mg cap take 1.5 tabs poqd)
     Route: 048

REACTIONS (8)
  - Fibromyalgia [Unknown]
  - Dysthymic disorder [Unknown]
  - Middle insomnia [Unknown]
  - Amnesia [Unknown]
  - Urinary retention [Unknown]
  - Disturbance in attention [Unknown]
  - Nausea [Unknown]
  - Vomiting [Unknown]
